FAERS Safety Report 6538072-0 (Version None)
Quarter: 2010Q1

REPORT INFORMATION
  Report Type: 
  Country: None (occurrence: None)
  Receive Date: 20100114
  Receipt Date: 20100108
  Transmission Date: 20100710
  Serious: Yes (Other)
  Sender: FDA-Public Use
  Company Number: AU-AMGEN-KDL360553

PATIENT
  Sex: Male
  Weight: 70 kg

DRUGS (7)
  1. NEULASTA [Suspect]
     Indication: CHEMOTHERAPY
     Route: 058
     Dates: start: 20090731, end: 20090928
  2. RITUXIMAB [Concomitant]
     Dates: start: 20090730
  3. CYCLOPHOSPHAMIDE [Concomitant]
     Dates: start: 20090730
  4. DOXORUBICIN HCL [Concomitant]
     Dates: start: 20090730
  5. VINCRISTINE [Concomitant]
     Dates: start: 20090730
  6. PREDNISONE [Concomitant]
     Dates: start: 20090730
  7. RADIATION THERAPY [Concomitant]

REACTIONS (11)
  - ABDOMINAL PAIN [None]
  - CHEST PAIN [None]
  - DRUG HYPERSENSITIVITY [None]
  - DYSPNOEA [None]
  - FATIGUE [None]
  - FEELING HOT [None]
  - HYPERHIDROSIS [None]
  - OROPHARYNGEAL PAIN [None]
  - PAIN IN EXTREMITY [None]
  - TENSION HEADACHE [None]
  - VERTIGO [None]
